FAERS Safety Report 22648840 (Version 13)
Quarter: 2025Q3

REPORT INFORMATION
  Report Type: Report from Study
  Country: CA (occurrence: CA)
  Receive Date: 20230628
  Receipt Date: 20250820
  Transmission Date: 20251021
  Serious: Yes (Hospitalization, Other)
  Sender: TAKEDA
  Company Number: CA-TAKEDA-2023TUS002370

PATIENT
  Age: 56 Year
  Sex: Male

DRUGS (36)
  1. VEDOLIZUMAB [Suspect]
     Active Substance: VEDOLIZUMAB
     Indication: Crohn^s disease
  2. VEDOLIZUMAB [Suspect]
     Active Substance: VEDOLIZUMAB
     Dosage: 300 MILLIGRAM, Q4WEEKS
     Dates: start: 20230720
  3. VEDOLIZUMAB [Suspect]
     Active Substance: VEDOLIZUMAB
     Dosage: 300 MILLIGRAM, Q4WEEKS
  4. VEDOLIZUMAB [Suspect]
     Active Substance: VEDOLIZUMAB
     Dosage: 300 MILLIGRAM, Q4WEEKS
  5. VEDOLIZUMAB [Suspect]
     Active Substance: VEDOLIZUMAB
     Dosage: 300 MILLIGRAM, Q4WEEKS
  6. VEDOLIZUMAB [Suspect]
     Active Substance: VEDOLIZUMAB
     Dosage: 300 MILLIGRAM, Q4WEEKS
  7. VEDOLIZUMAB [Suspect]
     Active Substance: VEDOLIZUMAB
     Dosage: 300 MILLIGRAM, Q4WEEKS
  8. VEDOLIZUMAB [Suspect]
     Active Substance: VEDOLIZUMAB
     Dosage: 300 MILLIGRAM, Q4WEEKS
  9. VEDOLIZUMAB [Suspect]
     Active Substance: VEDOLIZUMAB
     Dosage: 300 MILLIGRAM, Q4WEEKS
  10. VEDOLIZUMAB [Suspect]
     Active Substance: VEDOLIZUMAB
     Dosage: 300 MILLIGRAM, Q4WEEKS
  11. VEDOLIZUMAB [Suspect]
     Active Substance: VEDOLIZUMAB
     Dosage: 300 MILLIGRAM, Q4WEEKS
  12. MAGNESIUM GLUCONATE [Concomitant]
     Active Substance: MAGNESIUM GLUCONATE
  13. FERROUS SULFATE [Concomitant]
     Active Substance: FERROUS SULFATE
  14. ALENDRONATE [Concomitant]
     Active Substance: ALENDRONATE SODIUM
  15. CALCIUM [Concomitant]
     Active Substance: CALCIUM
  16. RIFAXIMIN [Concomitant]
     Active Substance: RIFAXIMIN
  17. VITAMIN D NOS [Concomitant]
     Active Substance: CHOLECALCIFEROL\ERGOCALCIFEROL
  18. ASPIRIN [Concomitant]
     Active Substance: ASPIRIN
  19. URSODIOL [Concomitant]
     Active Substance: URSODIOL
  20. URSODIOL [Concomitant]
     Active Substance: URSODIOL
  21. PREDNISONE [Concomitant]
     Active Substance: PREDNISONE
  22. PREDNISONE [Concomitant]
     Active Substance: PREDNISONE
  23. TACROLIMUS [Concomitant]
     Active Substance: TACROLIMUS
  24. NEXIUM [Concomitant]
     Active Substance: ESOMEPRAZOLE MAGNESIUM
  25. AMOXICILLIN\CLAVULANATE POTASSIUM [Concomitant]
     Active Substance: AMOXICILLIN\CLAVULANATE POTASSIUM
     Dates: start: 20221121, end: 20221207
  26. TACROLIMUS [Concomitant]
     Active Substance: TACROLIMUS
  27. TACROLIMUS [Concomitant]
     Active Substance: TACROLIMUS
  28. NORVASC [Concomitant]
     Active Substance: AMLODIPINE BESYLATE
  29. VALTREX [Concomitant]
     Active Substance: VALACYCLOVIR HYDROCHLORIDE
  30. ATOVAQUONE [Concomitant]
     Active Substance: ATOVAQUONE
  31. IRON [Concomitant]
     Active Substance: IRON
  32. IMURAN [Concomitant]
     Active Substance: AZATHIOPRINE
  33. CORTISONE [Concomitant]
     Active Substance: CORTISONE
  34. RISANKIZUMAB [Concomitant]
     Active Substance: RISANKIZUMAB
  35. LATANOPROST [Concomitant]
     Active Substance: LATANOPROST
  36. METOPROLOL [Concomitant]
     Active Substance: METOPROLOL

REACTIONS (12)
  - Crohn^s disease [Not Recovered/Not Resolved]
  - Seizure [Recovered/Resolved]
  - Haematochezia [Recovered/Resolved]
  - Blood creatinine increased [Recovered/Resolved]
  - Anaemia [Not Recovered/Not Resolved]
  - Cholangitis sclerosing [Not Recovered/Not Resolved]
  - Abscess intestinal [Unknown]
  - Diarrhoea [Not Recovered/Not Resolved]
  - Off label use [Unknown]
  - Faeces soft [Unknown]
  - Frequent bowel movements [Unknown]
  - Haemoglobin abnormal [Recovering/Resolving]

NARRATIVE: CASE EVENT DATE: 20230519
